FAERS Safety Report 9221688 (Version 1)
Quarter: 2013Q2

REPORT INFORMATION
  Report Type: Spontaneous
  Country: US (occurrence: US)
  Receive Date: 20130410
  Receipt Date: 20130410
  Transmission Date: 20140414
  Serious: Yes (Death, Hospitalization, Other)
  Sender: FDA-Public Use
  Company Number: US-JNJFOC-2004117310

PATIENT
  Age: 37 Year
  Sex: Female
  Weight: 65.77 kg

DRUGS (23)
  1. IBUPROFEN [Suspect]
     Indication: ILL-DEFINED DISORDER
     Route: 048
  2. NEURONTIN [Suspect]
     Indication: PAIN
     Dosage: DAILY DOSE QTY: 300 MG
     Route: 065
     Dates: start: 199512
  3. NEURONTIN [Suspect]
     Indication: PAIN
     Dosage: DAILY DOSE QTY: 1800 MG
     Route: 065
     Dates: start: 20021016
  4. NEURONTIN [Suspect]
     Indication: MOVEMENT DISORDER
     Dosage: DAILY DOSE QTY: 1800 MG
     Route: 065
     Dates: start: 20021016
  5. NEURONTIN [Suspect]
     Indication: MOVEMENT DISORDER
     Dosage: DAILY DOSE QTY: 300 MG
     Route: 065
     Dates: start: 199512
  6. NEURONTIN [Suspect]
     Indication: ALCOHOLIC SEIZURE
     Dosage: DAILY DOSE QTY: 1800 MG
     Route: 065
     Dates: start: 20021016
  7. NEURONTIN [Suspect]
     Indication: ALCOHOLIC SEIZURE
     Dosage: DAILY DOSE QTY: 300 MG
     Route: 065
     Dates: start: 199512
  8. NEURONTIN [Suspect]
     Indication: BIPOLAR DISORDER
     Dosage: DAILY DOSE QTY: 1800 MG
     Route: 065
     Dates: start: 20021016
  9. NEURONTIN [Suspect]
     Indication: BIPOLAR DISORDER
     Dosage: DAILY DOSE QTY: 300 MG
     Route: 065
     Dates: start: 199512
  10. AMITRIPTYLINE HYDROCHLORIDE [Suspect]
     Indication: ILL-DEFINED DISORDER
     Route: 048
  11. NORTRIPTYLINE HYDROCHLORIDE [Suspect]
     Indication: ILL-DEFINED DISORDER
     Dosage: FREQUENCY TEXT: UNKNOWN DAILY DOSE TEXT: UNKNOWN
     Route: 065
  12. VENLAFAXINE [Suspect]
     Indication: ILL-DEFINED DISORDER
     Dosage: DAILY DOSE QTY: 225 MG
     Route: 048
  13. OXYCODONE [Suspect]
     Indication: ILL-DEFINED DISORDER
     Dosage: FREQUENCY TEXT: UNKNOWN
     Route: 065
  14. BISOPROLOL FUMARATE/HYDROCHLOROTHIAZIDE [Concomitant]
     Dosage: FREQUENCY TEXT: UNKNOWN
     Route: 065
  15. BUSPIRONE [Concomitant]
     Dosage: FREQUENCY TEXT: UNKNOWN
     Route: 048
  16. VERAPAMIL [Concomitant]
     Dosage: DAILY DOSE QTY: 480 MG
     Route: 048
  17. ALBUTEROL [Concomitant]
     Dosage: FREQUENCY TEXT: UNKNOWN
     Route: 055
  18. SUMATRIPTAN [Concomitant]
     Dosage: FREQUENCY TEXT: UNKNOWN
     Route: 065
  19. TEMAZEPAM [Concomitant]
     Route: 048
  20. LIDOCAINE [Concomitant]
     Dosage: FREQUENCY TEXT: UNKNOWN
     Route: 062
  21. OXAZEPAM [Concomitant]
     Dosage: FREQUENCY TEXT: UNKNOWN
     Route: 065
  22. BENZODIAZEPINE DERIVATIVES [Concomitant]
     Dosage: FREQUENCY TEXT: UNKNOWN
     Route: 065
  23. OPIOIDS [Concomitant]
     Dosage: FREQUENCY TEXT: UNKNOWN
     Route: 065

REACTIONS (14)
  - Completed suicide [Fatal]
  - Accidental overdose [Fatal]
  - Cardiac arrest [Unknown]
  - Suicidal ideation [Unknown]
  - Homicidal ideation [Unknown]
  - Major depression [Unknown]
  - Consciousness fluctuating [Unknown]
  - Intentional drug misuse [Unknown]
  - Loss of consciousness [Recovered/Resolved]
  - Drug ineffective [Unknown]
  - Laceration [Unknown]
  - Contusion [Unknown]
  - Confusional state [Unknown]
  - Swelling [Unknown]
